FAERS Safety Report 5799262-8 (Version None)
Quarter: 2008Q3

REPORT INFORMATION
  Report Type: 
  Country: None (occurrence: None)
  Receive Date: 20080702
  Receipt Date: 20080623
  Transmission Date: 20090109
  Serious: Yes (Death, Other)
  Sender: FDA-Public Use
  Company Number: FR-PFIZER INC-2008049764

PATIENT
  Sex: Male

DRUGS (3)
  1. VFEND [Suspect]
     Indication: ASPERGILLOSIS
     Route: 042
  2. VFEND [Suspect]
     Route: 042
  3. DRUG, UNSPECIFIED [Concomitant]

REACTIONS (3)
  - AGGRESSION [None]
  - DEATH [None]
  - DELIRIUM [None]
